FAERS Safety Report 11506474 (Version 1)
Quarter: 2015Q3

REPORT INFORMATION
  Report Type: Spontaneous
  Country: US (occurrence: US)
  Receive Date: 20150915
  Receipt Date: 20150915
  Transmission Date: 20151125
  Serious: Yes (Hospitalization)
  Sender: FDA-Public Use
  Company Number: US-ROCHE-802806

PATIENT
  Age: 41 Year
  Sex: Female

DRUGS (3)
  1. PEGASYS [Suspect]
     Active Substance: PEGINTERFERON ALFA-2A
     Indication: CHRONIC HEPATITIS C
     Route: 058
  2. TELAPREVIR [Suspect]
     Active Substance: TELAPREVIR
     Indication: PRODUCT USED FOR UNKNOWN INDICATION
     Dosage: DRUG: INCIVEK. 750 MG 3 TIMES A DAY FOR 24 WEEK LENGTH THERAPY.
     Route: 065
  3. RIBAVIRIN. [Suspect]
     Active Substance: RIBAVIRIN
     Indication: CHRONIC HEPATITIS C
     Dosage: 1000 MG DAILY DIVEDED DOSE 600/4000.
     Route: 048

REACTIONS (5)
  - Anaemia [Unknown]
  - Insomnia [Unknown]
  - Dehydration [Unknown]
  - Dry mouth [Unknown]
  - Muscle twitching [Unknown]

NARRATIVE: CASE EVENT DATE: 20110829
